FAERS Safety Report 4432762-1 (Version None)
Quarter: 2004Q3

REPORT INFORMATION
  Report Type: 
  Country: None (occurrence: None)
  Receive Date: 20040721
  Receipt Date: 20040616
  Transmission Date: 20050211
  Serious: Yes (Other)
  Sender: FDA-Public Use
  Company Number: 2004041000

PATIENT
  Age: 53 Year
  Sex: Male
  Weight: 65.7716 kg

DRUGS (2)
  1. RELPAX [Suspect]
     Indication: MIGRAINE
     Dosage: 40 MG (40 MG, AS NEEDED), ORAL
     Route: 048
     Dates: start: 20040501
  2. CAFFEINE [Suspect]
     Indication: ILL-DEFINED DISORDER

REACTIONS (7)
  - ASTHENIA [None]
  - BACK PAIN [None]
  - DRUG DEPENDENCE [None]
  - MIGRAINE [None]
  - PSYCHOMOTOR HYPERACTIVITY [None]
  - SOMNOLENCE [None]
  - THROAT TIGHTNESS [None]
